FAERS Safety Report 23595152 (Version 1)
Quarter: 2024Q1

REPORT INFORMATION
  Report Type: Spontaneous
  Country: US (occurrence: US)
  Receive Date: 20240305
  Receipt Date: 20240305
  Transmission Date: 20240410
  Serious: Yes (Hospitalization)
  Sender: FDA-Public Use
  Company Number: US-AMGEN-USASP2024041866

PATIENT

DRUGS (2)
  1. OTEZLA [Suspect]
     Active Substance: APREMILAST
     Indication: Product used for unknown indication
     Dosage: UNK
     Route: 065
  2. TALTZ [Concomitant]
     Active Substance: IXEKIZUMAB
     Dosage: UNK

REACTIONS (7)
  - Ill-defined disorder [Unknown]
  - Drug ineffective [Unknown]
  - Arthralgia [Unknown]
  - Pruritus [Unknown]
  - Nail pitting [Unknown]
  - Fatigue [Unknown]
  - Pain in extremity [Unknown]
